FAERS Safety Report 12720422 (Version 2)
Quarter: 2016Q3

REPORT INFORMATION
  Report Type: Spontaneous
  Country: US (occurrence: US)
  Receive Date: 20160907
  Receipt Date: 20160916
  Transmission Date: 20161109
  Serious: No
  Sender: FDA-Public Use
  Company Number: US-BAYER-2016-173720

PATIENT
  Age: 70 Year
  Sex: Female
  Weight: 45.81 kg

DRUGS (3)
  1. REMERON [Concomitant]
     Active Substance: MIRTAZAPINE
  2. MIRALAX [Suspect]
     Active Substance: POLYETHYLENE GLYCOL 3350
     Indication: GASTROINTESTINAL DISORDER
     Dosage: 0.5 DF, UNK
     Route: 048
     Dates: start: 20160906
  3. MILK OF MAGNESIA ORIGINAL [Suspect]
     Active Substance: MAGNESIUM HYDROXIDE
     Dosage: UNK
     Route: 065

REACTIONS (3)
  - Underdose [None]
  - Diarrhoea [None]
  - Diarrhoea [Recovered/Resolved]
